FAERS Safety Report 5118909-2 (Version None)
Quarter: 2006Q3

REPORT INFORMATION
  Report Type: 
  Country: None (occurrence: None)
  Receive Date: 20060927
  Receipt Date: 20060911
  Transmission Date: 20061208
  Serious: Yes (Other)
  Sender: FDA-Public Use
  Company Number: DSA_81632_2006

PATIENT
  Sex: Female

DRUGS (2)
  1. XYREM [Suspect]
     Dosage: DF PO
     Route: 048
  2. VIGIL [Suspect]
     Dosage: DF

REACTIONS (5)
  - ASTHMA [None]
  - FALL [None]
  - PERSONALITY CHANGE [None]
  - PSYCHOMOTOR HYPERACTIVITY [None]
  - PSYCHOTIC DISORDER [None]
